FAERS Safety Report 8439906-5 (Version None)
Quarter: 2012Q2

REPORT INFORMATION
  Report Type: 
  Country: None (occurrence: None)
  Receive Date: 20120615
  Receipt Date: 20120608
  Transmission Date: 20120825
  Serious: Yes (Hospitalization, Other)
  Sender: FDA-Public Use
  Company Number: US-TEVA-342292USA

PATIENT
  Age: 83 Year
  Sex: Male
  Weight: 77.18 kg

DRUGS (22)
  1. MULTI-VITAMIN [Concomitant]
     Indication: MEDICAL DIET
     Dates: start: 20110401
  2. DOXYCYCLINE [Concomitant]
     Indication: PROPHYLAXIS
     Dates: start: 20120101
  3. BIMATOPROST [Concomitant]
     Dates: start: 20111001
  4. LORAZEPAM [Concomitant]
     Indication: NAUSEA
     Dates: start: 20120417
  5. LINUM USITATISSIMUM SEED OIL [Concomitant]
     Indication: MEDICAL DIET
     Dates: start: 20120101
  6. COSOPT [Concomitant]
     Indication: GLAUCOMA
     Route: 047
     Dates: start: 20120421
  7. FLUOROURACIL [Suspect]
     Indication: COLORECTAL CANCER METASTATIC
     Dosage: 400 MG/M2 IV BOLUS, FOLLOWED BY 2400 MG/M2 IV DAY 1 AND 2 EVERY 14 DAYS
     Dates: start: 20120501, end: 20120503
  8. ATROPINE [Concomitant]
     Dates: start: 20120501
  9. PALONOSETRON HYDROCHLORIDE [Concomitant]
     Dates: start: 20120501
  10. SEPTANEST [Concomitant]
     Dates: start: 20111001
  11. INVESTIGATIONAL DRUG [Suspect]
     Indication: COLORECTAL CANCER METASTATIC
     Dosage: HELD BEGINNING 15-MAY-2012
     Dates: start: 20120501, end: 20120501
  12. LISINOPRIL [Concomitant]
     Indication: HYPERTENSION
     Dates: start: 20111001
  13. LEUCOVORIN CALCIUM [Suspect]
     Dosage: 400 MG/M2, DAY 1 EVERY 14 DAYS INTRAVENOUS
     Dates: start: 20120501, end: 20120501
  14. IRINOTECAN HYDROCHLORIDE [Suspect]
     Indication: COLORECTAL CANCER METASTATIC
     Dosage: 180 MG/M2, INTRAVENOUS
     Dates: start: 20120501, end: 20120501
  15. DIPHENHYDRAMINE HCL [Concomitant]
     Dates: start: 20120501
  16. OMEPRAZOLE [Concomitant]
     Indication: GASTROOESOPHAGEAL REFLUX DISEASE
     Dates: start: 20110401
  17. BRINZOLAMIDE [Concomitant]
     Dates: start: 20111001
  18. WARFARIN SODIUM [Concomitant]
     Indication: ATRIAL FIBRILLATION
     Dates: start: 19930101
  19. MECLIZINE HYDROCHLORIDE [Concomitant]
     Indication: NAUSEA
     Dates: start: 20110401
  20. LOMOTIL [Concomitant]
     Indication: DIARRHOEA
     Dates: start: 20120417
  21. EMLA [Concomitant]
     Indication: PAIN
     Dates: start: 20120419
  22. DEXAMETHASONE SODIUM PHOSPHATE [Concomitant]
     Dates: start: 20120501

REACTIONS (5)
  - SYNCOPE [None]
  - HAND FRACTURE [None]
  - FALL [None]
  - RHABDOMYOLYSIS [None]
  - WHITE BLOOD CELL COUNT DECREASED [None]
